FAERS Safety Report 21453626 (Version 2)
Quarter: 2022Q4

REPORT INFORMATION
  Report Type: Spontaneous
  Country: IT (occurrence: IT)
  Receive Date: 20221013
  Receipt Date: 20221028
  Transmission Date: 20230113
  Serious: Yes (Hospitalization, Other)
  Sender: FDA-Public Use
  Company Number: IT-TEVA-2022-IT-2082374

PATIENT
  Age: 58 Year
  Sex: Male

DRUGS (5)
  1. BICALUTAMIDE [Suspect]
     Active Substance: BICALUTAMIDE
     Indication: Extramammary Paget^s disease
     Dosage: 50 MILLIGRAM DAILY;
     Route: 048
     Dates: start: 201906
  2. GEMCITABINE [Suspect]
     Active Substance: GEMCITABINE
     Indication: Extramammary Paget^s disease
     Dosage: THE PATIENT RECEIVED GEMCITABINE (800MG DAY 1, DAY 8 EVERY THREE WEEKS)
     Route: 065
     Dates: start: 201908
  3. LEUPROLIDE ACETATE [Suspect]
     Active Substance: LEUPROLIDE ACETATE
     Indication: Extramammary Paget^s disease
     Route: 030
     Dates: start: 201906
  4. TRASTUZUMAB [Suspect]
     Active Substance: TRASTUZUMAB
     Indication: HER2 positive breast cancer
     Dosage: AS A PART OF GEMCITABINE AND TRASTUZUMAB
     Route: 042
     Dates: start: 201908
  5. TRASTUZUMAB [Suspect]
     Active Substance: TRASTUZUMAB
     Dosage: AS A PART OF BICALUTAMIDE, LEUPRORELIN AND TRASTUZUMAB THERAPY;
     Route: 042
     Dates: start: 201906

REACTIONS (4)
  - Drug ineffective [Unknown]
  - Febrile neutropenia [Unknown]
  - Fatigue [Unknown]
  - Off label use [Unknown]
